FAERS Safety Report 6717488-3 (Version None)
Quarter: 2010Q2

REPORT INFORMATION
  Report Type: 
  Country: None (occurrence: None)
  Receive Date: 20100510
  Receipt Date: 20100429
  Transmission Date: 20101027
  Serious: Yes (Other)
  Sender: FDA-Public Use
  Company Number: IT-ROCHE-700448

PATIENT
  Sex: Female

DRUGS (5)
  1. ENFUVIRTIDE [Suspect]
     Route: 065
  2. STAVUDINE [Suspect]
     Route: 065
  3. TENOFOVIR DISOPROXIL FUMARATE [Suspect]
     Dosage: ANOTHER INDICATION: HIV INFECTION
     Route: 065
  4. RITONAVIR [Suspect]
     Route: 065
  5. TIPRANAVIR [Suspect]
     Route: 065

REACTIONS (4)
  - COAGULOPATHY [None]
  - HEPATIC FAILURE [None]
  - KLEBSIELLA INFECTION [None]
  - UREAPLASMA INFECTION [None]
